FAERS Safety Report 8540071-4 (Version None)
Quarter: 2012Q3

REPORT INFORMATION
  Report Type: 
  Country: None (occurrence: None)
  Receive Date: 20120726
  Receipt Date: 20070831
  Transmission Date: 20120928
  Serious: Yes (Other)
  Sender: FDA-Public Use
  Company Number: CO-PFIZER INC-2012180226

PATIENT
  Age: 64 Year
  Sex: Female

DRUGS (5)
  1. ACETYLSALICYLIC ACID [Concomitant]
     Dosage: 100 MG EVERY 24 HOURS
  2. METOPROLOL [Concomitant]
     Dosage: 50 MG, 1X/DAY
  3. PREDNISONE [Concomitant]
     Dosage: 5 MG, 1X/DAY
  4. ACCUPRIL [Suspect]
     Dosage: 20 MG, EVERY 24 HOURS
  5. LIPITOR [Suspect]
     Dosage: 20MG, EVERY 24 HOURS

REACTIONS (2)
  - CHEST PAIN [None]
  - HYPERTENSIVE EMERGENCY [None]
